FAERS Safety Report 25607262 (Version 1)
Quarter: 2025Q3

REPORT INFORMATION
  Report Type: Spontaneous
  Country: US (occurrence: US)
  Receive Date: 20250725
  Receipt Date: 20250725
  Transmission Date: 20251020
  Serious: Yes (Life-Threatening, Hospitalization)
  Sender: MYLAN
  Company Number: US-MYLANLABS-2025M1061832

PATIENT
  Age: 54 Year
  Sex: Male

DRUGS (12)
  1. NALOXONE [Suspect]
     Active Substance: NALOXONE
     Indication: Catatonia
  2. NALOXONE [Suspect]
     Active Substance: NALOXONE
     Indication: Toxicity to various agents
     Route: 065
  3. NALOXONE [Suspect]
     Active Substance: NALOXONE
     Route: 065
  4. NALOXONE [Suspect]
     Active Substance: NALOXONE
  5. ATROPINE [Concomitant]
     Active Substance: ATROPINE
     Indication: Bradycardia
  6. ATROPINE [Concomitant]
     Active Substance: ATROPINE
     Route: 065
  7. ATROPINE [Concomitant]
     Active Substance: ATROPINE
     Route: 065
  8. ATROPINE [Concomitant]
     Active Substance: ATROPINE
  9. EPINEPHRINE [Concomitant]
     Active Substance: EPINEPHRINE
     Indication: Cardiac resynchronisation therapy
  10. EPINEPHRINE [Concomitant]
     Active Substance: EPINEPHRINE
     Route: 042
  11. EPINEPHRINE [Concomitant]
     Active Substance: EPINEPHRINE
     Route: 042
  12. EPINEPHRINE [Concomitant]
     Active Substance: EPINEPHRINE

REACTIONS (1)
  - Therapy non-responder [Unknown]
